FAERS Safety Report 13181351 (Version 5)
Quarter: 2020Q2

REPORT INFORMATION
  Report Type: Report from Study
  Country: None (occurrence: AT)
  Receive Date: 20170202
  Receipt Date: 20200604
  Transmission Date: 20200713
  Serious: Yes (Other)
  Sender: FDA-Public Use
  Company Number: AT-ABBVIE-17K-009-1859782-00

PATIENT
  Age: 54 Year
  Sex: Female

DRUGS (4)
  1. PREDNISOLON [Concomitant]
     Active Substance: PREDNISOLONE
     Indication: PRODUCT USED FOR UNKNOWN INDICATION
  2. HUMIRA [Suspect]
     Active Substance: ADALIMUMAB
     Indication: RHEUMATOID ARTHRITIS
     Route: 058
  3. METHOTREXATE. [Concomitant]
     Active Substance: METHOTREXATE
     Indication: PRODUCT USED FOR UNKNOWN INDICATION
  4. HUMIRA [Suspect]
     Active Substance: ADALIMUMAB
     Indication: RHEUMATOID ARTHRITIS
     Route: 058

REACTIONS (15)
  - Conjunctivitis [Not Recovered/Not Resolved]
  - Respiratory tract infection [Recovered/Resolved]
  - Lymphocytosis [Recovered/Resolved]
  - Eosinophilia [Not Recovered/Not Resolved]
  - Respiratory tract infection [Recovered/Resolved]
  - Liver function test increased [Recovered/Resolved]
  - Agranulocytosis [Recovered/Resolved]
  - Respiratory tract infection [Recovered/Resolved]
  - Lymphocytosis [Recovered/Resolved]
  - Eosinophilia [Recovered/Resolved]
  - Neutropenia [Not Recovered/Not Resolved]
  - Sjogren^s syndrome [Not Recovered/Not Resolved]
  - Lymphocytosis [Unknown]
  - Humerus fracture [Recovered/Resolved]
  - Agranulocytosis [Unknown]

NARRATIVE: CASE EVENT DATE: 20110315
